FAERS Safety Report 5682803-9 (Version None)
Quarter: 2008Q1

REPORT INFORMATION
  Report Type: 
  Country: None (occurrence: None)
  Receive Date: 20080325
  Receipt Date: 20080318
  Transmission Date: 20080703
  Serious: Yes (Hospitalization)
  Sender: FDA-Public Use
  Company Number: WAES 0803AUS00171

PATIENT
  Age: 58 Year
  Sex: Male

DRUGS (7)
  1. TAB RALTEGRAVIR POTASSIUM [Suspect]
     Indication: HIV INFECTION
     Dosage: 400 MG/BID
     Route: 048
     Dates: start: 20080112, end: 20080305
  2. TAB ETRAVIRINE [Suspect]
     Indication: HIV INFECTION
     Dosage: 200 MG/BID
     Route: 048
     Dates: start: 20080112, end: 20080305
  3. BACTRIM DS [Concomitant]
  4. OXYCONTIN [Concomitant]
  5. DARUNAVIR [Concomitant]
  6. RITONAVIR [Concomitant]
  7. TENOFOVIR [Concomitant]

REACTIONS (6)
  - CONDITION AGGRAVATED [None]
  - DIARRHOEA [None]
  - ENCEPHALOPATHY [None]
  - HEPATIC CIRRHOSIS [None]
  - HEPATIC FAILURE [None]
  - PORTAL HYPERTENSION [None]
